FAERS Safety Report 8681269 (Version 2)
Quarter: 2013Q1

REPORT INFORMATION
  Report Type: Report from Study
  Country: DE (occurrence: DE)
  Receive Date: 20120725
  Receipt Date: 20130301
  Transmission Date: 20140127
  Serious: Yes (Hospitalization)
  Sender: FDA-Public Use
  Company Number: DE-BRISTOL-MYERS SQUIBB COMPANY-16784183

PATIENT
  Age: 72 Year
  Sex: Male
  Weight: 56 kg

DRUGS (4)
  1. ERBITUX SOLN FOR INF [Suspect]
     Indication: COLON CANCER METASTATIC
     Dosage: 18JN12-18JAN12,26JN12-8FB12:250MG/M2,1IN 1 WK(13DYS).LAST INF:08FEB12.26JAN12-08FEB13(13DAYS)
     Route: 042
     Dates: start: 20120118, end: 20120208
  2. CORTICOSTEROID [Concomitant]
     Indication: PREMEDICATION
     Route: 048
     Dates: start: 20120118, end: 20120209
  3. OXALIPLATIN [Concomitant]
     Indication: COLON CANCER METASTATIC
     Dosage: 6.1905MG/M2
     Dates: start: 20120118, end: 20120201
  4. CAPECITABINE [Concomitant]
     Indication: COLON CANCER METASTATIC
     Dates: start: 20120118, end: 20120201

REACTIONS (3)
  - Acute prerenal failure [Recovered/Resolved]
  - General physical health deterioration [Recovered/Resolved]
  - Dehydration [Recovered/Resolved]
